FAERS Safety Report 9633596 (Version 2)
Quarter: 2013Q4

REPORT INFORMATION
  Report Type: Report from Study
  Country: AU (occurrence: AU)
  Receive Date: 20131021
  Receipt Date: 20131101
  Transmission Date: 20140711
  Serious: Yes (Hospitalization)
  Sender: FDA-Public Use
  Company Number: PHHY2013AU114137

PATIENT
  Age: 52 Year
  Sex: Female

DRUGS (3)
  1. CLOZARIL [Suspect]
     Dosage: UNK
  2. LASIX [Concomitant]
     Indication: OEDEMA
     Dosage: UNK
  3. ANTIPSYCHOTICS [Concomitant]
     Dosage: UNK

REACTIONS (7)
  - Troponin T increased [Recovering/Resolving]
  - Mean cell volume increased [Recovered/Resolved]
  - Psychotic disorder [Unknown]
  - White blood cell count increased [Not Recovered/Not Resolved]
  - Neutrophil count increased [Not Recovered/Not Resolved]
  - Blood creatine phosphokinase increased [Not Recovered/Not Resolved]
  - Drug ineffective [Unknown]
